FAERS Safety Report 10077749 (Version 4)
Quarter: 2014Q3

REPORT INFORMATION
  Report Type: Spontaneous
  Country: US (occurrence: US)
  Receive Date: 20140414
  Receipt Date: 20140715
  Transmission Date: 20150326
  Serious: Yes (Hospitalization, Other)
  Sender: FDA-Public Use
  Company Number: US-GILEAD-2014-0099438

PATIENT
  Age: 75 Year
  Sex: Female

DRUGS (3)
  1. LETAIRIS [Suspect]
     Active Substance: AMBRISENTAN
     Dosage: 5 MG, QD
     Dates: start: 20121121
  2. LETAIRIS [Suspect]
     Active Substance: AMBRISENTAN
     Indication: PRODUCT USED FOR UNKNOWN INDICATION
     Dosage: 10 MG, QD
     Dates: start: 20121201
  3. ADCIRCA [Concomitant]
     Active Substance: TADALAFIL

REACTIONS (10)
  - Dizziness [Unknown]
  - Fatigue [Unknown]
  - Tachycardia [Unknown]
  - Syncope [Unknown]
  - Depression [Unknown]
  - Haematoma [Unknown]
  - Implantable defibrillator insertion [Unknown]
  - Dyspnoea [Unknown]
  - Chest discomfort [Unknown]
  - Oedema [Unknown]

NARRATIVE: CASE EVENT DATE: 20140405
